FAERS Safety Report 16209979 (Version 3)
Quarter: 2019Q2

REPORT INFORMATION
  Report Type: Spontaneous
  Country: US (occurrence: US)
  Receive Date: 20190417
  Receipt Date: 20190627
  Transmission Date: 20190711
  Serious: Yes (Death, Hospitalization)
  Sender: FDA-Public Use
  Company Number: US-VIFOR (INTERNATIONAL) INC.-VIT-2019-03559

PATIENT
  Age: 89 Year
  Sex: Male

DRUGS (13)
  1. VELTASSA [Suspect]
     Active Substance: PATIROMER
     Route: 048
     Dates: start: 20190108
  2. CLINDAMYCIN HCL [Concomitant]
     Active Substance: CLINDAMYCIN HYDROCHLORIDE
  3. ECOTRIN [Concomitant]
     Active Substance: ASPIRIN
  4. TORSEMIDE. [Concomitant]
     Active Substance: TORSEMIDE
  5. LABETALOL HCL [Concomitant]
     Active Substance: LABETALOL HYDROCHLORIDE
  6. HYDRALAZINE HCL [Concomitant]
     Active Substance: HYDRALAZINE HYDROCHLORIDE
  7. PERCOCET [Concomitant]
     Active Substance: ACETAMINOPHEN\OXYCODONE HYDROCHLORIDE
  8. TRAMADOL HCL [Concomitant]
     Active Substance: TRAMADOL HYDROCHLORIDE
  9. DIAZEPAM. [Concomitant]
     Active Substance: DIAZEPAM
  10. TERAZOSIN HCL [Concomitant]
     Active Substance: TERAZOSIN HYDROCHLORIDE
  11. LIPITOR [Concomitant]
     Active Substance: ATORVASTATIN CALCIUM
  12. VELTASSA [Suspect]
     Active Substance: PATIROMER
     Indication: HYPERKALAEMIA
     Route: 048
     Dates: start: 20160909
  13. ENALAPRIL MALEATE. [Concomitant]
     Active Substance: ENALAPRIL MALEATE

REACTIONS (2)
  - Death [Fatal]
  - Hospitalisation [Unknown]

NARRATIVE: CASE EVENT DATE: 2019
